FAERS Safety Report 9705738 (Version 1)
Quarter: 2013Q4

REPORT INFORMATION
  Report Type: Spontaneous
  Country: US (occurrence: US)
  Receive Date: 20131122
  Receipt Date: 20131122
  Transmission Date: 20140711
  Serious: No
  Sender: FDA-Public Use
  Company Number: US-GILEAD-2008-0017872

PATIENT
  Sex: Male
  Weight: 81.65 kg

DRUGS (16)
  1. LETAIRIS [Suspect]
     Indication: PULMONARY ARTERIAL HYPERTENSION
     Route: 048
     Dates: start: 20080605
  2. LISINOPRIL [Concomitant]
     Route: 048
  3. COREG [Concomitant]
     Route: 048
  4. VYTORIN [Concomitant]
     Route: 048
  5. CYMBALTA [Concomitant]
     Route: 048
  6. COZAAR [Concomitant]
     Route: 048
  7. DUONEB [Concomitant]
     Route: 055
  8. ADVAIR [Concomitant]
     Route: 055
  9. LASIX [Concomitant]
     Route: 048
  10. CARAFATE [Concomitant]
     Route: 048
  11. CLONAZEPAM [Concomitant]
     Route: 048
  12. NEXIUM [Concomitant]
     Route: 048
  13. LORTAB [Concomitant]
     Route: 048
  14. ALEVE [Concomitant]
     Route: 048
  15. NIASPAN [Concomitant]
     Route: 048
  16. POTASSIUM CL [Concomitant]
     Route: 048

REACTIONS (1)
  - Rash pruritic [Unknown]
